FAERS Safety Report 25185814 (Version 1)
Quarter: 2025Q2

REPORT INFORMATION
  Report Type: Spontaneous
  Country: FR (occurrence: FR)
  Receive Date: 20250410
  Receipt Date: 20250410
  Transmission Date: 20250717
  Serious: Yes (Hospitalization)
  Sender: MYLAN
  Company Number: None

PATIENT
  Age: 76 Year
  Sex: Male

DRUGS (8)
  1. PAROXETINE [Suspect]
     Active Substance: PAROXETINE
     Indication: Urosepsis
  2. PAROXETINE [Suspect]
     Active Substance: PAROXETINE
     Route: 048
  3. PAROXETINE [Suspect]
     Active Substance: PAROXETINE
     Route: 048
  4. PAROXETINE [Suspect]
     Active Substance: PAROXETINE
  5. LINEZOLID [Suspect]
     Active Substance: LINEZOLID
     Indication: Urosepsis
     Dates: start: 20250227, end: 20250228
  6. LINEZOLID [Suspect]
     Active Substance: LINEZOLID
     Route: 048
     Dates: start: 20250227, end: 20250228
  7. LINEZOLID [Suspect]
     Active Substance: LINEZOLID
     Route: 048
     Dates: start: 20250227, end: 20250228
  8. LINEZOLID [Suspect]
     Active Substance: LINEZOLID
     Dates: start: 20250227, end: 20250228

REACTIONS (2)
  - Seizure [Not Recovered/Not Resolved]
  - Lactic acidosis [Not Recovered/Not Resolved]

NARRATIVE: CASE EVENT DATE: 20250228
